FAERS Safety Report 9159390 (Version 2)
Quarter: 2013Q1

REPORT INFORMATION
  Report Type: Spontaneous
  Country: GB (occurrence: GB)
  Receive Date: 20130313
  Receipt Date: 20130328
  Transmission Date: 20140127
  Serious: Yes (Other)
  Sender: FDA-Public Use
  Company Number: PHFR2013GB001602

PATIENT
  Sex: Female

DRUGS (2)
  1. VOLTAROL [Suspect]
     Indication: RHEUMATOID ARTHRITIS
     Dosage: 50 MG, BID (TWICE A DAY)
     Route: 048
     Dates: start: 201208
  2. THYROXIN [Concomitant]
     Dosage: 100 MG, 13 YEARS UNK

REACTIONS (4)
  - Gait disturbance [Unknown]
  - Musculoskeletal stiffness [Unknown]
  - Myalgia [Unknown]
  - Drug ineffective [Unknown]
